FAERS Safety Report 6043747-6 (Version None)
Quarter: 2009Q1

REPORT INFORMATION
  Report Type: 
  Country: None (occurrence: None)
  Receive Date: 20090115
  Receipt Date: 20080208
  Transmission Date: 20090719
  Serious: Yes (Other)
  Sender: FDA-Public Use
  Company Number: 546907

PATIENT
  Age: 55 Year
  Sex: Male
  Weight: 90.8 kg

DRUGS (30)
  1. CEFTRIAXONE         (CEFTRIAXONE SODIUM) [Suspect]
     Indication: DRUG USE FOR UNKNOWN INDICATION
     Dosage: 2 GRAM 2 PER DAY INTRAVENOUS
     Route: 042
     Dates: start: 20070514, end: 20070528
  2. 1 SUSPECTED UNSPECIFIED DRUG (GENERIC UNKNOWN) [Suspect]
     Indication: HIV TEST POSITIVE
     Dosage: DOSE FORM DAILY ORAL
     Route: 048
     Dates: start: 20051027
  3. COMBIVIR [Suspect]
     Indication: HIV TEST POSITIVE
     Dosage: 450 MG 2 PER DAY ORAL
     Route: 048
     Dates: start: 20051027
  4. ZYPREXA [Concomitant]
  5. LISINOPRIL [Concomitant]
  6. NORVASC [Concomitant]
  7. GLUCOPHAGE [Concomitant]
  8. LUNESTA [Concomitant]
  9. GLIPIZIDE [Concomitant]
  10. DEPAKOTE [Concomitant]
  11. NADOLOL [Concomitant]
  12. FIBER-LAX (CALCIUM POLYCARBOPHIL) [Concomitant]
  13. NOVOLIN R [Concomitant]
  14. RIFAXIMIN (RIFAXIMIN) [Concomitant]
  15. ASPIRIN [Concomitant]
  16. OYST-CAL (CALCIUM CARBONATE) [Concomitant]
  17. HYDROCHLOROTHIAZIDE [Concomitant]
  18. PROTONIX [Concomitant]
  19. CALCIUM CARBONATE/VITAMIN D NOS [Concomitant]
  20. POTASSIUM CHLORIDE [Concomitant]
  21. VANCOMYCIN HYDROCHLORIDE [Concomitant]
  22. AZITHROMYCIN [Concomitant]
  23. ZOSYN [Concomitant]
  24. CIPROFLOXACIN [Concomitant]
  25. LOPRESSOR (METOPROLOL) [Concomitant]
  26. FLAGYL [Concomitant]
  27. ACYCLOVIR [Concomitant]
  28. HEPARIN [Concomitant]
  29. INSULIN REGULAR (INSULIN) [Concomitant]
  30. POTASSIUM CHLORIDE [Concomitant]

REACTIONS (3)
  - DRUG ERUPTION [None]
  - MENTAL STATUS CHANGES [None]
  - PYREXIA [None]
